FAERS Safety Report 8428073-X (Version None)
Quarter: 2012Q2

REPORT INFORMATION
  Report Type: 
  Country: None (occurrence: None)
  Receive Date: 20120611
  Receipt Date: 20120531
  Transmission Date: 20120825
  Serious: Yes (Life-Threatening)
  Sender: FDA-Public Use
  Company Number: JP-ASTRAZENECA-2012SE37882

PATIENT
  Sex: Female
  Weight: 100 kg

DRUGS (6)
  1. CANDESARTAN CILEXETIL [Suspect]
     Indication: HYPERTENSION
     Route: 048
  2. ONON [Concomitant]
     Indication: ASTHMA
     Route: 048
  3. THEO-DUR [Concomitant]
     Indication: ASTHMA
     Route: 048
  4. CONIEL [Concomitant]
     Indication: HYPERTENSION
     Route: 048
  5. ACTOS [Concomitant]
     Indication: DIABETES MELLITUS
     Route: 048
  6. AMARYL [Concomitant]
     Indication: DIABETES MELLITUS
     Route: 048

REACTIONS (2)
  - OLIGOHYDRAMNIOS [None]
  - PREGNANCY [None]
